FAERS Safety Report 8107518-9 (Version None)
Quarter: 2011Q4

REPORT INFORMATION
  Report Type: 
  Country: None (occurrence: None)
  Receive Date: 20111223
  Receipt Date: 20110112
  Transmission Date: 20120403
  Serious: Yes (Hospitalization)
  Sender: FDA-Public Use
  Company Number: 321548

PATIENT
  Age: 69 Year
  Sex: Female
  Weight: 67.6 kg

DRUGS (5)
  1. ASPIRIN [Concomitant]
  2. HUMALOG (INSULIN LISPRO) (CLOPIDOGREL) [Concomitant]
  3. LEVEMIR [Suspect]
     Indication: TYPE 2 DIABETES MELLITUS
     Dosage: 55 U, QD, SUBCUTANEOUS ; 60 U, QD, SUBCUTANEOUS
     Route: 058
     Dates: start: 20110105
  4. LEVEMIR [Suspect]
     Indication: TYPE 2 DIABETES MELLITUS
     Dosage: 55 U, QD, SUBCUTANEOUS ; 60 U, QD, SUBCUTANEOUS
     Route: 058
     Dates: start: 20080101, end: 20101231
  5. LIPITOR [Concomitant]

REACTIONS (4)
  - FALL [None]
  - BLOOD GLUCOSE INCREASED [None]
  - DEVICE FAILURE [None]
  - HYPOAESTHESIA [None]
